FAERS Safety Report 5625708-1 (Version None)
Quarter: 2008Q1

REPORT INFORMATION
  Report Type: 
  Country: None (occurrence: None)
  Receive Date: 20080214
  Receipt Date: 20080208
  Transmission Date: 20080703
  Serious: Yes (Other)
  Sender: FDA-Public Use
  Company Number: CA-BAYER-200813563NA

PATIENT
  Sex: Female

DRUGS (1)
  1. CAMPATH [Suspect]
     Indication: BONE MARROW TRANSPLANT
     Dates: start: 20080101

REACTIONS (1)
  - TRANSPLANT FAILURE [None]
